FAERS Safety Report 6512140-1 (Version None)
Quarter: 2009Q4

REPORT INFORMATION
  Report Type: 
  Country: None (occurrence: None)
  Receive Date: 20091222
  Receipt Date: 20090609
  Transmission Date: 20100525
  Serious: No
  Sender: FDA-Public Use
  Company Number: US-ASTRAZENECA-2009UW14792

PATIENT
  Age: 45 Year
  Sex: Male

DRUGS (7)
  1. CRESTOR [Suspect]
     Route: 048
  2. NEXIUM [Concomitant]
  3. VERAPAMIL [Concomitant]
  4. SPIRIVA [Concomitant]
  5. ADVAIR DISKUS 100/50 [Concomitant]
  6. AVODART [Concomitant]
  7. DIAZEPAM [Concomitant]

REACTIONS (1)
  - CHEST PAIN [None]
